FAERS Safety Report 6891658-6 (Version None)
Quarter: 2010Q3

REPORT INFORMATION
  Report Type: 
  Country: None (occurrence: None)
  Receive Date: 20100731
  Receipt Date: 20070919
  Transmission Date: 20110219
  Serious: No
  Sender: FDA-Public Use
  Company Number: US-PFIZER INC-2007078598

PATIENT
  Sex: Male
  Weight: 80.9 kg

DRUGS (10)
  1. NEURONTIN [Suspect]
     Indication: SPINAL DISORDER
     Dates: start: 20061201
  2. NEURONTIN [Suspect]
     Indication: SKELETAL INJURY
  3. NEURONTIN [Suspect]
     Indication: PAIN IN EXTREMITY
  4. NEURONTIN [Suspect]
     Indication: HYPOAESTHESIA
  5. NEURONTIN [Suspect]
     Indication: PAIN
  6. NEURONTIN [Suspect]
     Indication: NEUROPATHY PERIPHERAL
  7. TOPROL-XL [Concomitant]
     Indication: ATRIAL FIBRILLATION
  8. ALLOPURINOL [Concomitant]
  9. WARFARIN SODIUM [Concomitant]
  10. NORVASC [Concomitant]
     Indication: HYPERTENSION

REACTIONS (5)
  - CLUMSINESS [None]
  - DIZZINESS [None]
  - FEELING ABNORMAL [None]
  - HEART RATE DECREASED [None]
  - SEDATION [None]
